FAERS Safety Report 11690752 (Version 1)
Quarter: 2015Q4

REPORT INFORMATION
  Report Type: Spontaneous
  Country: US (occurrence: US)
  Receive Date: 20151102
  Receipt Date: 20151102
  Transmission Date: 20160304
  Serious: Yes (Hospitalization)
  Sender: FDA-Public Use
  Company Number: US-ENDO PHARMACEUTICALS INC.-2015-003675

PATIENT
  Age: 10 Year
  Sex: Female

DRUGS (14)
  1. ONFI [Suspect]
     Active Substance: CLOBAZAM
     Indication: LENNOX-GASTAUT SYNDROME
     Route: 065
  2. KEPPRA [Suspect]
     Active Substance: LEVETIRACETAM
     Indication: LENNOX-GASTAUT SYNDROME
     Route: 065
  3. VIMPAT [Suspect]
     Active Substance: LACOSAMIDE
     Indication: LENNOX-GASTAUT SYNDROME
     Route: 065
  4. DEPAKOTE [Suspect]
     Active Substance: DIVALPROEX SODIUM
     Indication: LENNOX-GASTAUT SYNDROME
     Route: 065
  5. ONFI [Suspect]
     Active Substance: CLOBAZAM
     Indication: LISSENCEPHALY
  6. DIASTAT [Suspect]
     Active Substance: DIAZEPAM
     Indication: LENNOX-GASTAUT SYNDROME
     Route: 065
  7. KEPPRA [Suspect]
     Active Substance: LEVETIRACETAM
     Indication: LISSENCEPHALY
  8. DEPAKOTE [Suspect]
     Active Substance: DIVALPROEX SODIUM
     Indication: LISSENCEPHALY
  9. PHENOBARBITAL. [Suspect]
     Active Substance: PHENOBARBITAL
     Indication: LISSENCEPHALY
  10. VIMPAT [Suspect]
     Active Substance: LACOSAMIDE
     Indication: LISSENCEPHALY
  11. DIASTAT [Suspect]
     Active Substance: DIAZEPAM
     Indication: LISSENCEPHALY
  12. KLONOPIN [Suspect]
     Active Substance: CLONAZEPAM
     Indication: LENNOX-GASTAUT SYNDROME
     Route: 065
  13. KLONOPIN [Suspect]
     Active Substance: CLONAZEPAM
     Indication: LISSENCEPHALY
  14. PHENOBARBITAL. [Suspect]
     Active Substance: PHENOBARBITAL
     Indication: LENNOX-GASTAUT SYNDROME
     Route: 065

REACTIONS (2)
  - Respiratory failure [Unknown]
  - Coma [Unknown]
